FAERS Safety Report 19051965 (Version 6)
Quarter: 2022Q1

REPORT INFORMATION
  Report Type: Spontaneous
  Country: IN (occurrence: IN)
  Receive Date: 20210324
  Receipt Date: 20220124
  Transmission Date: 20220424
  Serious: Yes (Death, Other)
  Sender: FDA-Public Use
  Company Number: IN-PFIZER INC-2021001492

PATIENT
  Age: 57 Year
  Sex: Male
  Weight: 70.1 kg

DRUGS (2)
  1. SUTENT [Suspect]
     Active Substance: SUNITINIB MALATE
     Indication: Gastrointestinal stromal tumour
     Dosage: 50 MG, CYCLIC (ONCE A DAY, 2 WEEKS ON 1 WEEK OFF )
     Route: 048
     Dates: start: 20201224
  2. SUTENT [Suspect]
     Active Substance: SUNITINIB MALATE
     Dosage: 37.5 MG, ONCE DAILY
     Route: 048

REACTIONS (8)
  - Renal failure [Fatal]
  - Cardiac disorder [Fatal]
  - Ischaemic stroke [Unknown]
  - Infarction [Unknown]
  - Palmar-plantar erythrodysaesthesia syndrome [Recovering/Resolving]
  - Skin toxicity [Unknown]
  - Hypertension [Unknown]
  - Neoplasm progression [Unknown]

NARRATIVE: CASE EVENT DATE: 20210115
